FAERS Safety Report 15593563 (Version 1)
Quarter: 2018Q4

REPORT INFORMATION
  Report Type: Spontaneous
  Country: CH (occurrence: CH)
  Receive Date: 20181106
  Receipt Date: 20181106
  Transmission Date: 20190205
  Serious: Yes (Hospitalization)
  Sender: FDA-Public Use
  Company Number: CH-NAPPMUNDI-GBR-2018-0061273

PATIENT
  Sex: Male
  Weight: 104 kg

DRUGS (14)
  1. SPIRICORT [Concomitant]
     Active Substance: PREDNISOLONE
     Dosage: UNK (1/4-0-0-0)
  2. ZALDIAR [Suspect]
     Active Substance: ACETAMINOPHEN\TRAMADOL HYDROCHLORIDE
     Indication: BACK PAIN
     Dosage: 1 TABLET, QID  (1-1-1-1) (TRAMADOL 37.5MG, PARACETAMOL 325MG)
     Route: 048
  3. PARAGOL N [Concomitant]
     Dosage: 10 ML, AM
  4. IMAZOL                             /01492601/ [Concomitant]
     Dosage: UNK (1-0-1-0) (CLOTRIMAZOL/HEXAMIDIN 10+2.5MG/G)
  5. TARGIN [Suspect]
     Active Substance: NALOXONE HYDROCHLORIDE\OXYCODONE HYDROCHLORIDE
     Indication: BACK PAIN
     Dosage: 1 TABLET, BID (1-0-1-0) (STRENGHT 10MG/5MG)
     Route: 065
  6. PANTOZOL [Concomitant]
     Active Substance: PANTOPRAZOLE SODIUM
     Dosage: 1 TABLET, AM
  7. OXYNORM [Suspect]
     Active Substance: OXYCODONE HYDROCHLORIDE
     Indication: BACK PAIN
     Dosage: PRN (STRENGTH 5MG)
     Route: 065
  8. MARCOUMAR [Concomitant]
     Active Substance: PHENPROCOUMON
     Dosage: UNK (ACCORDING TO INR REGIMEN)
     Route: 048
  9. INSULIN DEGLUDEC [Concomitant]
     Active Substance: INSULIN DEGLUDEC
     Dosage: 16 IU, AM
  10. EUTHYROX [Concomitant]
     Active Substance: LEVOTHYROXINE SODIUM
     Dosage: 1 TABLET, AM
  11. NOVALGINA [Concomitant]
     Active Substance: METAMIZOLE SODIUM
     Dosage: UNK (20-20-20-20) (25MG/DROPS)
  12. INSULIN ASPART [Concomitant]
     Active Substance: INSULIN ASPART
     Dosage: 16 IU, AM
  13. CONCOR [Concomitant]
     Active Substance: BISOPROLOL FUMARATE
     Dosage: 1 TABLET, AM
  14. TOREM                              /01036501/ [Concomitant]
     Active Substance: TORSEMIDE
     Dosage: UNK (2-2-0-0)
     Route: 048

REACTIONS (1)
  - Disturbance in attention [Recovering/Resolving]
